FAERS Safety Report 22269218 (Version 2)
Quarter: 2024Q3

REPORT INFORMATION
  Report Type: Spontaneous
  Country: BR (occurrence: BR)
  Receive Date: 20230501
  Receipt Date: 20240904
  Transmission Date: 20241017
  Serious: Yes (Hospitalization, Other)
  Sender: ORGANON
  Company Number: BR-ORGANON-O2304BRA002734

PATIENT
  Sex: Female
  Weight: 90 kg

DRUGS (9)
  1. ETONOGESTREL [Suspect]
     Active Substance: ETONOGESTREL
     Indication: Contraception
     Dosage: 1 IMPLANT IN RIGHT ARM
     Route: 058
     Dates: start: 20210912, end: 20240820
  2. ETONOGESTREL [Suspect]
     Active Substance: ETONOGESTREL
     Dosage: 1 IMPLANT 68 MG IN RIGHT ARM
     Route: 059
     Dates: start: 20240820
  3. AMITRIPTYLINE HYDROCHLORIDE [Concomitant]
     Active Substance: AMITRIPTYLINE HYDROCHLORIDE
     Indication: Anxiety
     Dosage: 1 PILL (10 MG)
  4. AMITRIPTYLINE HYDROCHLORIDE [Concomitant]
     Active Substance: AMITRIPTYLINE HYDROCHLORIDE
     Indication: Depression
     Dosage: 1 PILL (25 MG)
  5. DIAZEPAM [Concomitant]
     Active Substance: DIAZEPAM
     Dosage: UNK
  6. LORAZEPAM [Concomitant]
     Active Substance: LORAZEPAM
     Dosage: UNK
  7. FLUCONAZOLE [Concomitant]
     Active Substance: FLUCONAZOLE
     Dosage: UNK
  8. OZEMPIC [Concomitant]
     Active Substance: SEMAGLUTIDE
     Dosage: UNK
  9. CLONAZEPAM [Concomitant]
     Active Substance: CLONAZEPAM
     Dosage: 1 PILL PER DAY
     Dates: start: 2012

REACTIONS (32)
  - Kidney infection [Unknown]
  - Pneumonia [Unknown]
  - Hepatic vein thrombosis [Unknown]
  - Device dislocation [Not Recovered/Not Resolved]
  - Malaise [Unknown]
  - Spider vein [Not Recovered/Not Resolved]
  - COVID-19 [Unknown]
  - Functional gastrointestinal disorder [Unknown]
  - Hypotension [Unknown]
  - Abdominal discomfort [Unknown]
  - Abdominal pain upper [Not Recovered/Not Resolved]
  - Pain [Unknown]
  - Intermenstrual bleeding [Unknown]
  - Mood altered [Unknown]
  - Nervousness [Unknown]
  - Weight decreased [Recovered/Resolved]
  - Weight increased [Unknown]
  - Migraine [Recovered/Resolved]
  - Dizziness [Unknown]
  - Menstruation delayed [Unknown]
  - Vaginal haemorrhage [Recovered/Resolved]
  - Asthenia [Unknown]
  - Device placement issue [Not Recovered/Not Resolved]
  - Complication associated with device [Recovered/Resolved]
  - Implant site pain [Recovered/Resolved]
  - Malaise [Unknown]
  - Weight decreased [Unknown]
  - Prescription drug used without a prescription [Unknown]
  - Confusional state [Not Recovered/Not Resolved]
  - Bedridden [Unknown]
  - Vaginal haemorrhage [Unknown]
  - COVID-19 [Unknown]

NARRATIVE: CASE EVENT DATE: 20210101
